FAERS Safety Report 5588512-9 (Version None)
Quarter: 2008Q1

REPORT INFORMATION
  Report Type: 
  Country: None (occurrence: None)
  Receive Date: 20080111
  Receipt Date: 20080104
  Transmission Date: 20080703
  Serious: Yes (Hospitalization)
  Sender: FDA-Public Use
  Company Number: FR-GILEAD-2008-0014843

PATIENT
  Sex: Male
  Weight: 73 kg

DRUGS (7)
  1. TRUVADA [Suspect]
     Indication: HIV INFECTION
     Route: 048
     Dates: start: 20071221
  2. SUSTIVA [Suspect]
     Indication: HIV INFECTION
     Route: 048
     Dates: start: 20071221
  3. MYAMBUTOL [Suspect]
     Indication: TUBERCULOSIS
     Route: 048
     Dates: start: 20071026
  4. ANSATIPINE [Suspect]
     Indication: TUBERCULOSIS
     Route: 048
     Dates: start: 20071027
  5. RIMIFON [Suspect]
     Indication: TUBERCULOSIS
     Route: 048
     Dates: start: 20071026
  6. ZECLAR [Suspect]
     Route: 048
     Dates: start: 20071026
  7. BACTRIM FAIBLE [Suspect]
     Route: 048
     Dates: start: 20071012

REACTIONS (3)
  - ABDOMINAL PAIN [None]
  - HISTIOCYTOSIS HAEMATOPHAGIC [None]
  - PYREXIA [None]
